FAERS Safety Report 4653006-1 (Version None)
Quarter: 2005Q2

REPORT INFORMATION
  Report Type: 
  Country: None (occurrence: None)
  Receive Date: 20050502
  Receipt Date: 20050502
  Transmission Date: 20051028
  Serious: Yes (Other)
  Sender: FDA-Public Use
  Company Number: None

PATIENT
  Age: 75 Year
  Sex: Male
  Weight: 83.9 kg

DRUGS (15)
  1. TRAVOPROST [Suspect]
  2. DOCUSATE [Concomitant]
  3. FOLIC ACID [Concomitant]
  4. TRAVOPROST [Concomitant]
  5. MULTI-VITAMIN [Concomitant]
  6. ACETAMINOPHEN [Concomitant]
  7. FELODIPINE [Concomitant]
  8. FINASTERIDE [Concomitant]
  9. IRBESARTAN [Concomitant]
  10. LOVASTATIN [Concomitant]
  11. MESALAMINE [Concomitant]
  12. RANITIDINE [Concomitant]
  13. SIMETHICONE [Concomitant]
  14. ARTIFICIAL TEARS POLYVINYL ALCOHOL [Concomitant]
  15. LATANOPROST [Concomitant]

REACTIONS (2)
  - OCULAR HYPERAEMIA [None]
  - PAIN [None]
